FAERS Safety Report 11091692 (Version 2)
Quarter: 2015Q3

REPORT INFORMATION
  Report Type: Spontaneous
  Country: US (occurrence: US)
  Receive Date: 20150505
  Receipt Date: 20150804
  Transmission Date: 20151125
  Serious: Yes (Hospitalization)
  Sender: FDA-Public Use
  Company Number: US-GLAXOSMITHKLINE-US2015057726

PATIENT
  Sex: Female
  Weight: 47.17 kg

DRUGS (3)
  1. CELEXA [Concomitant]
     Active Substance: CITALOPRAM HYDROBROMIDE
  2. XANAX [Concomitant]
     Active Substance: ALPRAZOLAM
  3. LAMICTAL [Suspect]
     Active Substance: LAMOTRIGINE
     Indication: PRODUCT USED FOR UNKNOWN INDICATION
     Dosage: UNK
     Route: 048
     Dates: start: 20150325, end: 20150502

REACTIONS (5)
  - Rash [Unknown]
  - Sensitivity of teeth [Unknown]
  - Vision blurred [Unknown]
  - Thinking abnormal [Unknown]
  - Asthenia [Unknown]
